FAERS Safety Report 13785264 (Version 2)
Quarter: 2017Q3

REPORT INFORMATION
  Report Type: Spontaneous
  Country: ES (occurrence: ES)
  Receive Date: 20170725
  Receipt Date: 20170731
  Transmission Date: 20171127
  Serious: Yes (Death, Hospitalization)
  Sender: FDA-Public Use
  Company Number: ES-SHENZHEN TECHDOW PHARMACEUTICAL CO. LTD-ES-2017TEC0000037

PATIENT
  Age: 78 Year
  Sex: Female

DRUGS (2)
  1. HEPARIN SODIUM INJECTION USP, PRESERVATIVE FREE [Suspect]
     Active Substance: HEPARIN SODIUM
     Indication: HAEMOSTASIS
     Dosage: UNK
     Route: 042
  2. DICOUMAROL [Suspect]
     Active Substance: DICUMAROL
     Indication: HAEMOSTASIS
     Dosage: UNK

REACTIONS (2)
  - Retroperitoneal haemorrhage [Unknown]
  - Retroperitoneal haematoma [Fatal]
